FAERS Safety Report 10079389 (Version 1)
Quarter: 2014Q2

REPORT INFORMATION
  Report Type: Spontaneous
  Country: US (occurrence: None)
  Receive Date: 20140414
  Receipt Date: 20140414
  Transmission Date: 20141212
  Serious: Yes (Other)
  Sender: FDA-Public Use
  Company Number: None

PATIENT
  Age: 29 Year
  Sex: Female
  Weight: 104.33 kg

DRUGS (2)
  1. LOVAZA [Suspect]
     Indication: BLOOD TRIGLYCERIDES INCREASED
     Dosage: 2 GRAMS, TWICE DAILY, TAKEN BY MOUTH?
     Route: 048
     Dates: start: 20140320, end: 20140410
  2. LOVAZA [Suspect]
     Indication: BLOOD CHOLESTEROL INCREASED
     Dosage: 2 GRAMS, TWICE DAILY, TAKEN BY MOUTH?
     Route: 048
     Dates: start: 20140320, end: 20140410

REACTIONS (3)
  - Irritability [None]
  - Depression [None]
  - Nightmare [None]
